FAERS Safety Report 20350488 (Version 1)
Quarter: 2022Q1

REPORT INFORMATION
  Report Type: Spontaneous
  Country: FR (occurrence: FR)
  Receive Date: 20220119
  Receipt Date: 20220119
  Transmission Date: 20220423
  Serious: Yes (Life-Threatening, Other)
  Sender: FDA-Public Use
  Company Number: None

PATIENT
  Age: 16 Year
  Sex: Male

DRUGS (7)
  1. LYRICA [Suspect]
     Active Substance: PREGABALIN
     Dosage: 6 TO 7 TABLETS, SINGLE
     Route: 048
     Dates: start: 20210929, end: 20210929
  2. LYRICA [Suspect]
     Active Substance: PREGABALIN
     Dosage: 600 MG
     Route: 048
  3. RIVOTRIL [Suspect]
     Active Substance: CLONAZEPAM
     Dosage: 2 MG
     Route: 065
  4. RIVOTRIL [Suspect]
     Active Substance: CLONAZEPAM
     Dosage: 6 TO 7 TABLETS, SINGLE
     Route: 065
     Dates: start: 20210928, end: 20210928
  5. COCAINE [Suspect]
     Active Substance: COCAINE
     Dosage: UNK
     Route: 055
  6. COCAINE [Suspect]
     Active Substance: COCAINE
     Dosage: UNK
     Route: 045
  7. CANNABIS SATIVA SUBSP. INDICA TOP [Concomitant]
     Active Substance: CANNABIS SATIVA SUBSP. INDICA TOP
     Route: 055

REACTIONS (3)
  - Toxicity to various agents [Recovered/Resolved]
  - Coma [Recovered/Resolved]
  - Drug abuser [Not Recovered/Not Resolved]

NARRATIVE: CASE EVENT DATE: 20140101
